FAERS Safety Report 4905626-4 (Version None)
Quarter: 2006Q1

REPORT INFORMATION
  Report Type: 
  Country: None (occurrence: None)
  Receive Date: 20060113
  Receipt Date: 20050919
  Transmission Date: 20060701
  Serious: No
  Sender: FDA-Public Use
  Company Number: 2005SP002722

PATIENT
  Age: 80 Year
  Sex: Male
  Weight: 63.5036 kg

DRUGS (8)
  1. LUNESTA [Suspect]
     Indication: INSOMNIA
     Dosage: 2 MG;HS;ORAL
     Route: 048
     Dates: start: 20050904, end: 20050904
  2. LUNESTA [Suspect]
     Indication: PAIN
     Dosage: 2 MG;HS;ORAL
     Route: 048
     Dates: start: 20050904, end: 20050904
  3. TYLENOL W/ CODEINE [Concomitant]
  4. WARFARIN SODIUM [Concomitant]
  5. LISINOPRIL [Concomitant]
  6. DIGOXIN [Concomitant]
  7. PENTOXIFYLLINE [Concomitant]
  8. SALT TABLETS [Concomitant]

REACTIONS (1)
  - INSOMNIA [None]
